FAERS Safety Report 4436985-7 (Version None)
Quarter: 2004Q3

REPORT INFORMATION
  Report Type: 
  Country: None (occurrence: None)
  Receive Date: 20040830
  Receipt Date: 20040325
  Transmission Date: 20050211
  Serious: No
  Sender: FDA-Public Use
  Company Number: US-GLAXOSMITHKLINE-A0504581A

PATIENT
  Age: 50 Year
  Sex: Female

DRUGS (3)
  1. BECONASE [Suspect]
     Dosage: 1SPR PER DAY
     Route: 045
  2. BECONASE [Suspect]
     Dosage: 1SPR PER DAY
     Route: 045
  3. FLONASE [Suspect]
     Dosage: 1SPR PER DAY
     Route: 045
     Dates: start: 20040301, end: 20040301

REACTIONS (5)
  - CONFUSIONAL STATE [None]
  - DIZZINESS [None]
  - HEADACHE [None]
  - NASAL DISCOMFORT [None]
  - NASAL ULCER [None]
